FAERS Safety Report 5533639-0 (Version None)
Quarter: 2007Q4

REPORT INFORMATION
  Report Type: 
  Country: None (occurrence: None)
  Receive Date: 20071204
  Receipt Date: 20071126
  Transmission Date: 20080405
  Serious: Yes (Other)
  Sender: FDA-Public Use
  Company Number: US-BAYER-US-2007-040360

PATIENT
  Age: 29 Year
  Sex: Female
  Weight: 93 kg

DRUGS (3)
  1. MIRENA [Suspect]
     Indication: CONTRACEPTION
     Route: 015
     Dates: start: 20050921, end: 20070718
  2. ALBUTEROL [Concomitant]
  3. VALTREX [Concomitant]

REACTIONS (1)
  - PREGNANCY WITH CONTRACEPTIVE DEVICE [None]
